FAERS Safety Report 7636918-6 (Version None)
Quarter: 2011Q3

REPORT INFORMATION
  Report Type: 
  Country: None (occurrence: None)
  Receive Date: 20110726
  Receipt Date: 20110718
  Transmission Date: 20111222
  Serious: Yes (Other)
  Sender: FDA-Public Use
  Company Number: US-ASTRAZENECA-2009UW17372

PATIENT
  Age: 18895 Day
  Sex: Male

DRUGS (4)
  1. SEROQUEL [Suspect]
     Indication: SLEEP DISORDER
     Route: 048
     Dates: start: 20040927
  2. LEXAPRO [Concomitant]
     Dates: start: 20040927
  3. ZOCOR [Concomitant]
     Dates: start: 20080601
  4. VALIUM [Concomitant]
     Dates: start: 20040927

REACTIONS (4)
  - WEIGHT INCREASED [None]
  - DIABETES MELLITUS [None]
  - NEUROPATHY PERIPHERAL [None]
  - DIABETES MELLITUS INADEQUATE CONTROL [None]
